FAERS Safety Report 13998175 (Version 2)
Quarter: 2018Q2

REPORT INFORMATION
  Report Type: Spontaneous
  Country: KW (occurrence: KW)
  Receive Date: 20170921
  Receipt Date: 20180515
  Transmission Date: 20180711
  Serious: Yes (Death, Other)
  Sender: FDA-Public Use
  Company Number: KW-PFIZER INC-2017402295

PATIENT
  Age: 82 Year
  Sex: Female

DRUGS (10)
  1. LINEZOLID. [Concomitant]
     Active Substance: LINEZOLID
     Indication: STREPTOCOCCAL SEPSIS
     Dosage: 600 MG, EVERY 12 HOURS
     Route: 042
  2. CLINDAMYCIN PHOSPHATE. [Suspect]
     Active Substance: CLINDAMYCIN PHOSPHATE
     Indication: STREPTOCOCCAL SEPSIS
     Dosage: 600 MG, EERY 8 HOURS
     Route: 042
  3. CLINDAMYCIN PHOSPHATE. [Suspect]
     Active Substance: CLINDAMYCIN PHOSPHATE
     Indication: SEPTIC ARTHRITIS STAPHYLOCOCCAL
  4. MEROPENEM. [Concomitant]
     Active Substance: MEROPENEM
     Indication: ARTHRITIS BACTERIAL
  5. LINEZOLID. [Concomitant]
     Active Substance: LINEZOLID
     Indication: ARTHRITIS BACTERIAL
  6. PENICILLIN G [Suspect]
     Active Substance: PENICILLIN G
     Indication: STREPTOCOCCAL SEPSIS
     Dosage: 4 MILLION IU, EVERY 4 HRS
     Route: 042
  7. DOPAMINE [Concomitant]
     Active Substance: DOPAMINE\DOPAMINE HYDROCHLORIDE
     Dosage: 5 UG/ML, UNK
  8. NOREPINEPHRINE BITARTRATE. [Concomitant]
     Active Substance: NOREPINEPHRINE BITARTRATE
     Dosage: 3 UG/ML, UNK
  9. MEROPENEM. [Concomitant]
     Active Substance: MEROPENEM
     Indication: STREPTOCOCCAL SEPSIS
     Dosage: 500 MG, EVERY 8 HOURS
     Route: 042
  10. PENICILLIN G [Suspect]
     Active Substance: PENICILLIN G
     Indication: SEPTIC ARTHRITIS STREPTOCOCCAL
     Dosage: REDUCED TO 2 MILLION IU, EVERY 6 HOURS
     Route: 042

REACTIONS (1)
  - Drug ineffective [Fatal]
